FAERS Safety Report 6762854-3 (Version None)
Quarter: 2010Q2

REPORT INFORMATION
  Report Type: 
  Country: None (occurrence: None)
  Receive Date: 20100609
  Receipt Date: 20100601
  Transmission Date: 20101027
  Serious: Yes (Death)
  Sender: FDA-Public Use
  Company Number: IT-PFIZER INC-2010068361

PATIENT
  Age: 57 Year
  Sex: Male
  Weight: 106.5 kg

DRUGS (7)
  1. PEGVISOMANT [Suspect]
     Indication: ACROMEGALY
     Dosage: 20 MG, ONCE A DAY
     Route: 058
     Dates: start: 20060110, end: 20100530
  2. CUMADIN [Concomitant]
  3. TAREG [Concomitant]
     Dosage: 80
  4. LASITONE [Concomitant]
  5. LEVOTHYROXINE SODIUM [Concomitant]
     Dosage: 25
  6. CORDARONE [Concomitant]
  7. LANOXIN [Concomitant]
     Dosage: 0.125

REACTIONS (1)
  - DEATH [None]
